FAERS Safety Report 23937270 (Version 1)
Quarter: 2024Q2

REPORT INFORMATION
  Report Type: Spontaneous
  Country: US (occurrence: None)
  Receive Date: 20240604
  Receipt Date: 20240604
  Transmission Date: 20240715
  Serious: Yes (Hospitalization)
  Sender: FDA-Public Use
  Company Number: None

PATIENT
  Sex: Male
  Weight: 91.5 kg

DRUGS (1)
  1. CISPLATIN [Suspect]
     Active Substance: CISPLATIN
     Dates: end: 20240508

REACTIONS (12)
  - Chest pain [None]
  - Dyspnoea [None]
  - Gastrostomy tube site complication [None]
  - Haemorrhage [None]
  - Asthenia [None]
  - Fall [None]
  - Myocardial necrosis marker increased [None]
  - Ejection fraction [None]
  - Condition aggravated [None]
  - Ventricular hypokinesia [None]
  - Mitral valve incompetence [None]
  - Tricuspid valve incompetence [None]

NARRATIVE: CASE EVENT DATE: 20240522
